FAERS Safety Report 10227260 (Version 1)
Quarter: 2014Q2

REPORT INFORMATION
  Report Type: Spontaneous
  Country: US (occurrence: None)
  Receive Date: 20140606
  Receipt Date: 20140606
  Transmission Date: 20141212
  Serious: Yes (Hospitalization)
  Sender: FDA-Public Use
  Company Number: ORE201405-000079

PATIENT
  Age: 38 Year
  Sex: Male
  Weight: 81.65 kg

DRUGS (3)
  1. ZUBSOLV SUBLINGUAL TABLET [Suspect]
     Indication: DRUG DEPENDENCE
     Dosage: (1 DOSAGE FORMS)
     Route: 060
     Dates: end: 201405
  2. DILAUDID (HYDROMORPHONE HYDROCHLORIDE) [Concomitant]
  3. SYNTHROID (LEVOTHYROXINE SODIUM) [Concomitant]

REACTIONS (2)
  - Fall [None]
  - Lower limb fracture [None]
